FAERS Safety Report 6794547-0 (Version None)
Quarter: 2010Q2

REPORT INFORMATION
  Report Type: 
  Country: None (occurrence: None)
  Receive Date: 20100625
  Receipt Date: 20100615
  Transmission Date: 20101027
  Serious: Yes (Hospitalization, Other)
  Sender: FDA-Public Use
  Company Number: GR-PFIZER INC-2010075176

PATIENT
  Sex: Female

DRUGS (2)
  1. GEODON [Suspect]
     Indication: SCHIZOPHRENIA
     Dosage: UNK
     Route: 048
     Dates: end: 20100601
  2. MEDROL [Suspect]
     Indication: POLYARTERITIS NODOSA
     Dosage: UNK

REACTIONS (4)
  - ADRENAL DISORDER [None]
  - HYPOKALAEMIA [None]
  - HYPONATRAEMIA [None]
  - VOMITING [None]
